FAERS Safety Report 5877967-8 (Version None)
Quarter: 2008Q3

REPORT INFORMATION
  Report Type: 
  Country: None (occurrence: None)
  Receive Date: 20080911
  Receipt Date: 20080908
  Transmission Date: 20090109
  Serious: Yes (Other)
  Sender: FDA-Public Use
  Company Number: JP-ASTRAZENECA-2008AP05130

PATIENT
  Age: 59 Year
  Sex: Female
  Weight: 65 kg

DRUGS (12)
  1. XYLOCAINE [Suspect]
     Indication: LOCAL ANAESTHESIA
     Route: 048
     Dates: start: 20080620, end: 20080620
  2. LASIX [Concomitant]
     Indication: CARDIAC FAILURE CONGESTIVE
     Route: 048
     Dates: start: 20071119
  3. ALDACTONE [Concomitant]
     Indication: CARDIAC FAILURE CONGESTIVE
     Route: 048
     Dates: start: 20071119
  4. DIOVAN [Concomitant]
     Indication: CARDIAC FAILURE CONGESTIVE
     Route: 048
     Dates: start: 20071119
  5. FERROMIA [Concomitant]
     Route: 048
     Dates: start: 20071119
  6. ATELEC [Concomitant]
     Indication: CARDIAC FAILURE CONGESTIVE
     Route: 048
     Dates: start: 20071126
  7. ARTIST [Concomitant]
     Indication: CARDIAC FAILURE CONGESTIVE
     Route: 048
     Dates: start: 20071212
  8. RENIVACE [Concomitant]
     Indication: CARDIAC FAILURE CONGESTIVE
     Route: 048
     Dates: start: 20071226
  9. GASCON [Concomitant]
     Indication: GASTRIC CANCER
     Route: 048
     Dates: start: 20080620, end: 20080620
  10. PRONASE MS [Concomitant]
     Indication: GASTRIC CANCER
     Dosage: DOSE UNKNOWN
     Route: 048
     Dates: start: 20080620, end: 20080620
  11. SODIUM BICARBONATE [Concomitant]
     Indication: GASTRIC CANCER
     Dosage: DOSE UNKNOWN
     Route: 048
     Dates: start: 20080620, end: 20080620
  12. GLUCAGON [Concomitant]
     Indication: GASTRIC CANCER
     Route: 030
     Dates: start: 20080620, end: 20080620

REACTIONS (1)
  - ANAPHYLACTIC SHOCK [None]
